FAERS Safety Report 5977837-0 (Version None)
Quarter: 2008Q4

REPORT INFORMATION
  Report Type: 
  Country: None (occurrence: None)
  Receive Date: 20081203
  Receipt Date: 20081125
  Transmission Date: 20090506
  Serious: Yes (Other)
  Sender: FDA-Public Use
  Company Number: DE-WYE-H02945508

PATIENT
  Sex: Male
  Weight: 78.9 kg

DRUGS (7)
  1. SIROLIMUS [Suspect]
     Indication: PROPHYLAXIS AGAINST TRANSPLANT REJECTION
     Dosage: DOSE AND FREQUENCY NOT SPECIFIED
     Route: 048
     Dates: start: 20040906, end: 20080425
  2. CALCITRIOL [Concomitant]
     Dosage: DOSE AND FREQUENCY NOT SPECIFIED
     Route: 048
     Dates: start: 20010821
  3. FLUVASTATIN [Concomitant]
     Indication: HYPERCHOLESTEROLAEMIA
     Dosage: 80 MG EVERY OTHER DAY
     Route: 048
     Dates: start: 20050405
  4. HEPATECT [Concomitant]
     Indication: PROPHYLAXIS
     Dosage: DOSE AND FREQUENCY NOT PROVIDED
     Route: 042
     Dates: start: 20080102, end: 20080109
  5. CANDESARTAN [Concomitant]
     Indication: HYPERTENSION
     Dosage: 8 MG DAILY
     Route: 048
     Dates: start: 20021029
  6. LAMIVUDINE [Concomitant]
     Indication: PROPHYLAXIS
     Dosage: DOSE AND FREQUENCY NOT SPECIFIED
     Route: 048
     Dates: start: 19970901
  7. CALCIUM [Concomitant]
     Dosage: DOSE AND FREQUENCY NOT SPECIFIED
     Route: 048
     Dates: start: 20020507, end: 20071204

REACTIONS (1)
  - ANAL CANCER [None]
